FAERS Safety Report 8998324 (Version 2)
Quarter: 2013Q2

REPORT INFORMATION
  Report Type: Spontaneous
  Country: GB (occurrence: GB)
  Receive Date: 20130104
  Receipt Date: 20130627
  Transmission Date: 20140414
  Serious: Yes (Disabling)
  Sender: FDA-Public Use
  Company Number: GB-PFIZER INC-2013000955

PATIENT
  Sex: Female
  Weight: 60 kg

DRUGS (6)
  1. AMLODIPINE BESILATE [Suspect]
     Indication: HYPERTENSION
     Dosage: 5 MG, 2X/DAY
     Route: 048
     Dates: start: 20121204, end: 20121213
  2. LIPITOR [Concomitant]
     Dosage: 20 MG, 1X/DAY
  3. SYMBICORT [Concomitant]
     Dosage: 1 DF, 2X/DAY
  4. CALCICHEW [Concomitant]
     Dosage: 1 DF, 2X/DAY
  5. AZATHIOPRINE [Concomitant]
     Dosage: 50 MG, 1X/DAY
  6. OMEPRAZOLE [Concomitant]
     Dosage: 20 MG, 2X/DAY

REACTIONS (2)
  - Confusional state [Recovering/Resolving]
  - Memory impairment [Recovering/Resolving]
